FAERS Safety Report 8371072-7 (Version None)
Quarter: 2012Q2

REPORT INFORMATION
  Report Type: 
  Country: None (occurrence: None)
  Receive Date: 20120518
  Receipt Date: 20110719
  Transmission Date: 20120825
  Serious: No
  Sender: FDA-Public Use
  Company Number: US-BRISTOL-MYERS SQUIBB COMPANY-15911787

PATIENT
  Age: 3 Decade
  Sex: Male

DRUGS (1)
  1. BARACLUDE [Suspect]

REACTIONS (4)
  - FATIGUE [None]
  - PYREXIA [None]
  - NAUSEA [None]
  - ABDOMINAL PAIN [None]
